FAERS Safety Report 7795010-0 (Version None)
Quarter: 2011Q4

REPORT INFORMATION
  Report Type: 
  Country: None (occurrence: None)
  Receive Date: 20111004
  Receipt Date: 20110929
  Transmission Date: 20120403
  Serious: Yes (Life-Threatening, Hospitalization, Disabling)
  Sender: FDA-Public Use
  Company Number: PHHY2011EG86930

PATIENT
  Age: 20 Year
  Sex: Male

DRUGS (2)
  1. SCOPOLAMINE [Concomitant]
  2. VOLTAREN [Suspect]
     Indication: RENAL COLIC
     Dosage: INFUSION ON GLUCOSE SOLUTION

REACTIONS (1)
  - CYANOSIS [None]
